FAERS Safety Report 15033941 (Version 4)
Quarter: 2019Q3

REPORT INFORMATION
  Report Type: Spontaneous
  Country: US (occurrence: US)
  Receive Date: 20180620
  Receipt Date: 20190806
  Transmission Date: 20191004
  Serious: Yes (Death, Life-Threatening, Hospitalization, Other)
  Sender: FDA-Public Use
  Company Number: PHEH2018US022264

PATIENT
  Age: 12 Year
  Sex: Male
  Weight: 64 kg

DRUGS (1)
  1. KYMRIAH [Suspect]
     Active Substance: TISAGENLECLEUCEL
     Indication: ACUTE LYMPHOCYTIC LEUKAEMIA
     Dosage: UNK UNK, ONCE/SINGLE
     Route: 042
     Dates: start: 20180508, end: 20180508

REACTIONS (10)
  - Pyrexia [Unknown]
  - Cytokine release syndrome [Recovered/Resolved with Sequelae]
  - Adenovirus infection [Unknown]
  - Acute respiratory distress syndrome [Fatal]
  - Arthralgia [Unknown]
  - Neurotoxicity [Recovered/Resolved]
  - Hypoxia [Unknown]
  - Heart rate increased [Unknown]
  - Confusional state [Unknown]
  - Candida infection [Unknown]

NARRATIVE: CASE EVENT DATE: 20180512
